FAERS Safety Report 23700536 (Version 1)
Quarter: 2024Q2

REPORT INFORMATION
  Report Type: Spontaneous
  Country: US (occurrence: US)
  Receive Date: 20240403
  Receipt Date: 20240403
  Transmission Date: 20240716
  Serious: Yes (Other)
  Sender: FDA-Public Use
  Company Number: US-MLMSERVICE-20190610-1799527-1

PATIENT

DRUGS (9)
  1. TACROLIMUS [Suspect]
     Active Substance: TACROLIMUS
     Indication: Immunosuppressant drug therapy
     Dosage: UNK
     Route: 065
     Dates: start: 201110
  2. TACROLIMUS [Suspect]
     Active Substance: TACROLIMUS
     Dosage: UNK (INCREASES IN HER IMMUNOSUPPRESSIVE THERAPY)
     Route: 065
  3. PREDNISONE [Suspect]
     Active Substance: PREDNISONE
     Indication: Immunosuppressant drug therapy
     Dosage: UNK (INTERMITTENT STEROIDS)
     Route: 065
     Dates: start: 201110
  4. PREDNISONE [Suspect]
     Active Substance: PREDNISONE
     Dosage: UNK (INCREASE THE DOSE)
     Route: 065
     Dates: start: 201512
  5. PREDNISONE [Suspect]
     Active Substance: PREDNISONE
     Dosage: UNK (INCREASES IN HER IMMUNOSUPPRESSIVE THERAPY)
     Route: 065
     Dates: end: 201512
  6. MYCOPHENOLATE MOFETIL [Suspect]
     Active Substance: MYCOPHENOLATE MOFETIL
     Indication: Immunosuppressant drug therapy
     Dosage: UNK
     Route: 065
     Dates: start: 201110
  7. MYCOPHENOLATE MOFETIL [Suspect]
     Active Substance: MYCOPHENOLATE MOFETIL
     Dosage: UNK (INCREASES IN HER IMMUNOSUPPRESSIVE THERAPY)
     Route: 065
     Dates: end: 201608
  8. ALPHA-1 PROTEINASE INHIBITOR HUMAN [Concomitant]
     Indication: Product used for unknown indication
     Dosage: UNK
     Route: 065
     Dates: start: 201110
  9. ALPHA-1 PROTEINASE INHIBITOR HUMAN [Concomitant]
     Dosage: UNK (INCREASE THE DOSE)
     Route: 065
     Dates: start: 201512

REACTIONS (2)
  - Pleomorphism [Recovering/Resolving]
  - Sarcoma of skin [Recovering/Resolving]

NARRATIVE: CASE EVENT DATE: 20160701
